FAERS Safety Report 25650578 (Version 2)
Quarter: 2025Q3

REPORT INFORMATION
  Report Type: Spontaneous
  Country: US (occurrence: US)
  Receive Date: 20250806
  Receipt Date: 20250822
  Transmission Date: 20251021
  Serious: Yes (Life-Threatening, Hospitalization)
  Sender: TEVA
  Company Number: US-TEVA-VS-3358700

PATIENT
  Age: 37 Year
  Sex: Female

DRUGS (2)
  1. DEXAMETHASONE [Suspect]
     Active Substance: DEXAMETHASONE
     Indication: Haemophagocytic lymphohistiocytosis
     Route: 065
  2. RASBURICASE [Suspect]
     Active Substance: RASBURICASE
     Indication: Tumour lysis syndrome
     Route: 065

REACTIONS (3)
  - Tumour lysis syndrome [Unknown]
  - Drug ineffective [Unknown]
  - Small intestinal obstruction [Unknown]
